FAERS Safety Report 5309617-3 (Version None)
Quarter: 2007Q2

REPORT INFORMATION
  Report Type: 
  Country: None (occurrence: None)
  Receive Date: 20070427
  Receipt Date: 20070418
  Transmission Date: 20071010
  Serious: Yes (Hospitalization, Disabling)
  Sender: FDA-Public Use
  Company Number: JP-JNJFOC-20050904899

PATIENT
  Sex: Male
  Weight: 70 kg

DRUGS (29)
  1. REMICADE [Suspect]
     Route: 042
  2. REMICADE [Suspect]
     Indication: RHEUMATOID ARTHRITIS
     Route: 042
  3. MEDROL [Suspect]
     Route: 048
  4. MEDROL [Suspect]
     Route: 048
  5. MEDROL [Suspect]
     Route: 048
  6. MEDROL [Suspect]
     Route: 048
  7. MEDROL [Suspect]
     Indication: INTERSTITIAL LUNG DISEASE
     Route: 048
  8. MEDROL [Suspect]
     Indication: DERMATOMYOSITIS
     Route: 048
  9. PROGRAF [Suspect]
     Indication: RHEUMATOID ARTHRITIS
     Route: 048
  10. PROGRAF [Suspect]
     Indication: DERMATOMYOSITIS
     Route: 048
  11. SOLU-MEDROL [Concomitant]
     Dosage: ROUTE OF ADMINISTRATION DR
  12. SOLU-MEDROL [Concomitant]
     Indication: DERMATOMYOSITIS
     Dosage: ROUTE OF ADMINISTRATION DR
  13. PREDONINE [Concomitant]
  14. PREDONINE [Concomitant]
     Indication: DERMATOMYOSITIS
  15. ENDOXAN [Concomitant]
  16. ENDOXAN [Concomitant]
  17. ENDOXAN [Concomitant]
  18. ENDOXAN [Concomitant]
     Indication: INTERSTITIAL LUNG DISEASE
  19. FARNEZONE [Concomitant]
     Indication: DERMATOMYOSITIS
     Dosage: ROUTE OF ADMINISTRATION OD
  20. MAXIPIME [Concomitant]
     Indication: INFECTION
     Route: 042
  21. DEXAMETHASONE PALMITATE [Concomitant]
     Dosage: DOSE 1 AMP
     Route: 042
  22. DEXAMETHASONE PALMITATE [Concomitant]
     Dosage: DOSE 1 AMP
     Route: 042
  23. DEXAMETHASONE PALMITATE [Concomitant]
     Indication: DERMATOMYOSITIS
     Route: 042
  24. BENET [Concomitant]
     Route: 048
  25. FAMOTIDINE [Concomitant]
     Route: 048
  26. COLCHICINE [Concomitant]
     Route: 048
  27. BLOPRESS [Concomitant]
     Route: 048
  28. NORVASC [Concomitant]
     Route: 048
  29. VOLTAREN [Concomitant]
     Route: 048

REACTIONS (7)
  - DRUG EFFECT DECREASED [None]
  - INFLAMMATION [None]
  - JOINT TUBERCULOSIS [None]
  - METHICILLIN-RESISTANT STAPHYLOCOCCAL AUREUS TEST POSITIVE [None]
  - PULMONARY TUBERCULOSIS [None]
  - TOXIC SKIN ERUPTION [None]
  - TUBERCULOSIS [None]
